FAERS Safety Report 7932675-4 (Version None)
Quarter: 2011Q4

REPORT INFORMATION
  Report Type: 
  Country: None (occurrence: None)
  Receive Date: 20111122
  Receipt Date: 20111118
  Transmission Date: 20120403
  Serious: Yes (Other)
  Sender: FDA-Public Use
  Company Number: US-JNJFOC-20111108522

PATIENT
  Sex: Female
  Weight: 103.42 kg

DRUGS (9)
  1. ADALAT [Concomitant]
     Indication: BLOOD PRESSURE ABNORMAL
     Route: 048
     Dates: start: 20030101
  2. FIBERCON [Concomitant]
     Route: 048
     Dates: start: 19810101
  3. BYSTOLIC [Concomitant]
     Indication: BLOOD PRESSURE ABNORMAL
     Route: 048
     Dates: start: 20080101
  4. SLOW RELEASE IRON [Concomitant]
  5. MULTI-VITAMINS [Concomitant]
     Indication: BLOOD TRIGLYCERIDES ABNORMAL
     Route: 048
     Dates: start: 19910101
  6. SIMPONI [Suspect]
     Indication: PSORIATIC ARTHROPATHY
     Route: 058
     Dates: start: 20111118
  7. SIMPONI [Suspect]
     Route: 058
     Dates: start: 20100101, end: 20110101
  8. ACIPHEX [Concomitant]
     Indication: PROPHYLAXIS
     Route: 048
     Dates: start: 20030101
  9. TRILIPIX [Concomitant]
     Indication: BLOOD TRIGLYCERIDES ABNORMAL
     Route: 048
     Dates: start: 20100101

REACTIONS (4)
  - BLOOD CHOLESTEROL INCREASED [None]
  - DIABETES MELLITUS [None]
  - DEVICE MALFUNCTION [None]
  - DRUG DOSE OMISSION [None]
